FAERS Safety Report 5134973-9 (Version None)
Quarter: 2006Q4

REPORT INFORMATION
  Report Type: 
  Country: None (occurrence: None)
  Receive Date: 20061025
  Receipt Date: 20061018
  Transmission Date: 20070319
  Serious: Yes (Other)
  Sender: FDA-Public Use
  Company Number: US-BOEHRINGER INGELHEIM PHARMACEUTICALS, INC.-2006-BP-12279BP

PATIENT
  Sex: Male
  Weight: 88.45 kg

DRUGS (14)
  1. MIRAPEX [Suspect]
     Indication: MOVEMENT DISORDER
  2. VIAGRA [Suspect]
     Indication: ERECTILE DYSFUNCTION
     Route: 048
  3. COLACE [Concomitant]
     Indication: IRRITABLE BOWEL SYNDROME
  4. ASPIRIN [Concomitant]
  5. SINEMET [Concomitant]
  6. AMBIEN [Concomitant]
     Indication: SLEEP DISORDER
  7. PREVACID [Concomitant]
  8. LASIX [Concomitant]
     Indication: DIURETIC THERAPY
  9. LEXAPRO [Concomitant]
  10. WELLBUTRIN [Concomitant]
  11. VITAMIN E [Concomitant]
  12. MELATONIN [Concomitant]
     Indication: SLEEP DISORDER
  13. ADVAIR HFA [Concomitant]
     Indication: ASTHMA
     Route: 055
  14. CLARITIN [Concomitant]
     Indication: HYPERSENSITIVITY

REACTIONS (7)
  - BODY HEIGHT DECREASED [None]
  - DRUG INEFFECTIVE [None]
  - ERECTILE DYSFUNCTION [None]
  - HALLUCINATION [None]
  - OSTEOGENESIS IMPERFECTA [None]
  - SPEECH DISORDER [None]
  - WEIGHT INCREASED [None]
